FAERS Safety Report 5114114-4 (Version None)
Quarter: 2006Q3

REPORT INFORMATION
  Report Type: 
  Country: None (occurrence: None)
  Receive Date: 20060925
  Receipt Date: 20060919
  Transmission Date: 20061208
  Serious: Yes (Other)
  Sender: FDA-Public Use
  Company Number: GB-GLAXOSMITHKLINE-B0439253A

PATIENT
  Sex: Female

DRUGS (5)
  1. ZINNAT [Suspect]
     Dosage: 500MG PER DAY
     Route: 048
     Dates: start: 20060822, end: 20060823
  2. COMBIVENT [Concomitant]
     Indication: CHRONIC OBSTRUCTIVE PULMONARY DISEASE
  3. CO-PROXAMOL [Concomitant]
     Indication: ARTHRITIS
     Route: 048
  4. FUROSEMIDE [Concomitant]
     Route: 048
     Dates: start: 20010101
  5. SERETIDE [Concomitant]
     Indication: CHRONIC OBSTRUCTIVE PULMONARY DISEASE
     Route: 055

REACTIONS (1)
  - SWOLLEN TONGUE [None]
